FAERS Safety Report 7595541-2 (Version None)
Quarter: 2011Q3

REPORT INFORMATION
  Report Type: 
  Country: None (occurrence: None)
  Receive Date: 20110707
  Receipt Date: 20110615
  Transmission Date: 20111222
  Serious: Yes (Hospitalization)
  Sender: FDA-Public Use
  Company Number: US-GLAXOSMITHKLINE-A0869759A

PATIENT
  Age: 59 Year
  Sex: Male
  Weight: 61.8 kg

DRUGS (10)
  1. LASIX [Concomitant]
  2. AVANDAMET [Suspect]
     Indication: DIABETES MELLITUS
     Route: 048
     Dates: start: 20030101, end: 20040101
  3. LIPITOR [Concomitant]
  4. PROCRIT [Concomitant]
  5. NORVASC [Concomitant]
  6. GLIPIZIDE [Concomitant]
  7. AVANDIA [Suspect]
     Indication: DIABETES MELLITUS
     Dosage: 8MG PER DAY
     Route: 048
     Dates: start: 20050113, end: 20050801
  8. ATACAND [Concomitant]
  9. LISINOPRIL [Concomitant]
  10. TOPROL-XL [Concomitant]

REACTIONS (2)
  - MYOCARDIAL INFARCTION [None]
  - CARDIAC FAILURE CONGESTIVE [None]
